FAERS Safety Report 10863029 (Version 1)
Quarter: 2015Q1

REPORT INFORMATION
  Report Type: Spontaneous
  Country: US (occurrence: US)
  Receive Date: 20150223
  Receipt Date: 20150223
  Transmission Date: 20150721
  Serious: Yes (Hospitalization)
  Sender: FDA-Public Use
  Company Number: US-SA-2015SA021457

PATIENT
  Age: 57 Year
  Sex: Male

DRUGS (1)
  1. ENOXAPARIN SODIUM. [Suspect]
     Active Substance: ENOXAPARIN SODIUM
     Indication: VENOUS THROMBOSIS
     Route: 065

REACTIONS (6)
  - Flank pain [Unknown]
  - Hypotension [Unknown]
  - Cardiac arrest [Unknown]
  - Haemoglobin decreased [Unknown]
  - Retroperitoneal haematoma [Unknown]
  - Abdominal compartment syndrome [Unknown]
